FAERS Safety Report 16010005 (Version 3)
Quarter: 2021Q4

REPORT INFORMATION
  Report Type: Spontaneous
  Country: AU (occurrence: None)
  Receive Date: 20190227
  Receipt Date: 20211125
  Transmission Date: 20220303
  Serious: Yes (Other)
  Sender: FDA-Public Use
  Company Number: AU-ROCHE-2269930

PATIENT
  Sex: Female

DRUGS (2)
  1. RITUXIMAB [Suspect]
     Active Substance: RITUXIMAB
     Indication: Autoimmune hepatitis
     Dosage: SINGLE DOSE AND A SECOND DOSE WAS GIVEN IN FEB/2019
     Route: 041
     Dates: start: 2013
  2. AZATHIOPRINE [Concomitant]
     Active Substance: AZATHIOPRINE
     Indication: Autoimmune hepatitis

REACTIONS (5)
  - Pyoderma gangrenosum [Unknown]
  - Autoimmune hepatitis [Unknown]
  - Hepatic cirrhosis [Unknown]
  - Intentional product use issue [Unknown]
  - Off label use [Unknown]
